FAERS Safety Report 7893446-0 (Version None)
Quarter: 2011Q4

REPORT INFORMATION
  Report Type: 
  Country: None (occurrence: None)
  Receive Date: 20111104
  Receipt Date: 20100414
  Transmission Date: 20120403
  Serious: Yes (Other)
  Sender: FDA-Public Use
  Company Number: NL-TEVA-307444ISR

PATIENT
  Sex: Female

DRUGS (1)
  1. CHLORAMPHENICOL [Suspect]
     Indication: EYE INFECTION
     Dosage: DOSAGE IS NOT KNOWN
     Route: 047
     Dates: start: 20100315, end: 20100322

REACTIONS (5)
  - GINGIVAL BLEEDING [None]
  - OROPHARYNGEAL PAIN [None]
  - FATIGUE [None]
  - HAEMORRHAGE [None]
  - EYE SWELLING [None]
